FAERS Safety Report 9301209 (Version 2)
Quarter: 2013Q2

REPORT INFORMATION
  Report Type: Spontaneous
  Country: US (occurrence: US)
  Receive Date: 20130521
  Receipt Date: 20130612
  Transmission Date: 20140414
  Serious: Yes (Death)
  Sender: FDA-Public Use
  Company Number: US-GLAXOSMITHKLINE-A1024172A

PATIENT
  Age: 54 Year
  Sex: Female

DRUGS (9)
  1. VOTRIENT [Suspect]
     Indication: MALIGNANT URINARY TRACT NEOPLASM
     Dosage: 400MG PER DAY
     Route: 048
  2. DEXAMETHASONE [Concomitant]
  3. ALPRAZOLAM [Concomitant]
  4. OMEPRAZOLE [Concomitant]
  5. JANUVIA [Concomitant]
  6. MAGNESIUM [Concomitant]
  7. OXYCODONE [Concomitant]
  8. GLIMEPIRIDE [Concomitant]
  9. INLYTA [Concomitant]

REACTIONS (1)
  - Renal cell carcinoma [Fatal]
